FAERS Safety Report 11630586 (Version 1)
Quarter: 2015Q4

REPORT INFORMATION
  Report Type: Spontaneous
  Country: IT (occurrence: IT)
  Receive Date: 20151014
  Receipt Date: 20151014
  Transmission Date: 20160304
  Serious: Yes (Hospitalization)
  Sender: FDA-Public Use
  Company Number: IT-TEVA-600362ACC

PATIENT
  Age: 66 Year
  Sex: Female
  Weight: 56 kg

DRUGS (5)
  1. CARBOPLATINO TEVA - TEVA PHARMA B.V. [Suspect]
     Active Substance: CARBOPLATIN
     Indication: OVARIAN CANCER
     Dosage: 500 MG CYCLICAL
     Route: 042
     Dates: start: 20150224, end: 20150611
  2. ZOFRAN - 8 MG/4 ML SOLUZIONE INIETTABILE - GLAXOSMITHKLINE S.P.A. [Concomitant]
     Indication: PROPHYLAXIS OF NAUSEA AND VOMITING
     Dosage: 8 MG
     Route: 042
     Dates: start: 20150224, end: 20150611
  3. SOLDESAM - 4 MG/ML SOLUZIONE INIETTABILE (LABORATORIO FARMACOLOGICO MI [Concomitant]
     Indication: INFLAMMATION
     Dosage: 20 MG
     Route: 042
     Dates: start: 20150224, end: 20150611
  4. TRIMETON - 10 MG/1 ML SOLUZIONE INIETTABILE - BAYER S.P.A. [Concomitant]
     Indication: HYPERSENSITIVITY
     Dosage: 10 MG
     Route: 042
     Dates: start: 20150224, end: 20150611
  5. ZANTAC - 50 MG/5 ML SOLUZIONE INIETTABILE (GLAXOSMITHKLINE S.P.A.) [Concomitant]
     Indication: PROPHYLAXIS OF NAUSEA AND VOMITING
     Dosage: 50 MG
     Route: 042
     Dates: start: 20150224, end: 20150611

REACTIONS (3)
  - Abdominal pain [Recovered/Resolved]
  - Retching [Recovered/Resolved]
  - Gastrointestinal hypomotility [Recovered/Resolved]

NARRATIVE: CASE EVENT DATE: 20150522
